FAERS Safety Report 4690738-3 (Version None)
Quarter: 2005Q2

REPORT INFORMATION
  Report Type: 
  Country: None (occurrence: None)
  Receive Date: 20050614
  Receipt Date: 20050614
  Transmission Date: 20051028
  Serious: Yes (Life-Threatening, Hospitalization)
  Sender: FDA-Public Use
  Company Number: None

PATIENT
  Age: 33 Year
  Sex: Male
  Weight: 131.9967 kg

DRUGS (11)
  1. BUPROPION      100MG [Suspect]
     Indication: DEPRESSION
     Dosage: 100MG    TWICE DAILY   ORAL
     Route: 048
     Dates: start: 20050121, end: 20050419
  2. CYCLOBENZAPRINE HCL [Concomitant]
  3. DIAZEPAM [Concomitant]
  4. OLANZAPINE [Concomitant]
  5. GABAPENTIN [Concomitant]
  6. HYDROCHLOROTHIAZIDE [Concomitant]
  7. IRBESARTAN [Concomitant]
  8. LORATADINE [Concomitant]
  9. OMEPRAZOLE [Concomitant]
  10. TOPIRAMATE [Concomitant]
  11. VERAPAMIL HCL [Concomitant]

REACTIONS (3)
  - CONVULSION [None]
  - LIFE SUPPORT [None]
  - TREATMENT NONCOMPLIANCE [None]
